FAERS Safety Report 5544094-9 (Version None)
Quarter: 2007Q4

REPORT INFORMATION
  Report Type: 
  Country: None (occurrence: None)
  Receive Date: 20071210
  Receipt Date: 20061121
  Transmission Date: 20080405
  Serious: No
  Sender: FDA-Public Use
  Company Number: US-AMGEN-KDL201192

PATIENT
  Sex: Male

DRUGS (2)
  1. ENBREL [Suspect]
     Indication: RHEUMATOID ARTHRITIS
     Route: 058
     Dates: start: 20051001
  2. HYDROXYCHLOROQUINE SULFATE [Concomitant]
     Dates: start: 20060808

REACTIONS (2)
  - RASH MACULO-PAPULAR [None]
  - SKIN IRRITATION [None]
